FAERS Safety Report 12663867 (Version 1)
Quarter: 2016Q3

REPORT INFORMATION
  Report Type: Report from Study
  Country: US (occurrence: US)
  Receive Date: 20160818
  Receipt Date: 20160818
  Transmission Date: 20161109
  Serious: No
  Sender: FDA-Public Use
  Company Number: PHEH2016US020814

PATIENT
  Sex: Female

DRUGS (1)
  1. TOBI PODHALER [Suspect]
     Active Substance: TOBRAMYCIN
     Indication: IMMUNODEFICIENCY COMMON VARIABLE
     Dosage: 4 DF(112 MG), BID
     Route: 055
     Dates: start: 20160509

REACTIONS (2)
  - Product use issue [Unknown]
  - Speech disorder [Unknown]
